FAERS Safety Report 17229630 (Version 1)
Quarter: 2020Q1

REPORT INFORMATION
  Report Type: Spontaneous
  Country: PT (occurrence: PT)
  Receive Date: 20200103
  Receipt Date: 20200103
  Transmission Date: 20200409
  Serious: Yes (Hospitalization, Other)
  Sender: FDA-Public Use
  Company Number: PT-MYLANLABS-2019M1131688

PATIENT
  Age: 40 Year
  Sex: Male

DRUGS (6)
  1. METHYLENE BLUE. [Suspect]
     Active Substance: METHYLENE BLUE
     Dosage: 100 MILLIGRAM
     Route: 065
  2. BUPROPION. [Suspect]
     Active Substance: BUPROPION
     Dosage: 300 MILLIGRAM, QD
  3. BUPROPION. [Suspect]
     Active Substance: BUPROPION
     Indication: DRUG DEPENDENCE
     Dosage: 16 DOSAGE FORM
     Route: 065
  4. VALPROIC ACID. [Concomitant]
     Active Substance: VALPROIC ACID
     Indication: AFFECTIVE DISORDER
     Dosage: 500 MG, DAILY
  5. VALPROIC ACID. [Suspect]
     Active Substance: VALPROIC ACID
     Indication: AFFECTIVE DISORDER
     Dosage: UNK
  6. METHYLENE BLUE. [Suspect]
     Active Substance: METHYLENE BLUE
     Indication: METHAEMOGLOBINAEMIA
     Dosage: 50 MILLIGRAM
     Route: 065

REACTIONS (10)
  - Oxygen saturation abnormal [Unknown]
  - Fatigue [Unknown]
  - Generalised tonic-clonic seizure [Recovered/Resolved]
  - Methaemoglobinaemia [Recovered/Resolved]
  - Confusional state [Unknown]
  - Disorientation [Unknown]
  - Dyspnoea [Unknown]
  - Extra dose administered [Unknown]
  - Cyanosis central [Unknown]
  - Toxicity to various agents [Unknown]
